FAERS Safety Report 8035884-1 (Version None)
Quarter: 2012Q1

REPORT INFORMATION
  Report Type: 
  Country: None (occurrence: None)
  Receive Date: 20120111
  Receipt Date: 20120111
  Transmission Date: 20120608
  Serious: Yes (Hospitalization)
  Sender: FDA-Public Use
  Company Number: None

PATIENT
  Age: 28 Year
  Sex: Female
  Weight: 47.627 kg

DRUGS (1)
  1. BEYAZ [Suspect]
     Dosage: 3-0.02-0.451
     Route: 048
     Dates: start: 20110503, end: 20110503

REACTIONS (1)
  - PANCREATITIS ACUTE [None]
